FAERS Safety Report 23443358 (Version 2)
Quarter: 2024Q1

REPORT INFORMATION
  Report Type: Report from Study
  Country: JP (occurrence: JP)
  Receive Date: 20240125
  Receipt Date: 20240304
  Transmission Date: 20240410
  Serious: Yes (Other)
  Sender: FDA-Public Use
  Company Number: JP-OTSUKA-2024_001693

PATIENT
  Age: 86 Year
  Sex: Male
  Weight: 54 kg

DRUGS (2)
  1. TOLVAPTAN [Suspect]
     Active Substance: TOLVAPTAN
     Indication: Hyponatraemia
     Dosage: 7.5 MG, QD (MORNING), DOSING INTERVAL (DAILY DOSING)
     Route: 048
     Dates: start: 20230804
  2. TOLVAPTAN [Suspect]
     Active Substance: TOLVAPTAN
     Indication: Inappropriate antidiuretic hormone secretion
     Dosage: 3.75 MG, QD (MORNING), DOSING INTERVAL (DAILY DOSING)
     Route: 048
     Dates: start: 20230731, end: 20230803

REACTIONS (3)
  - Delirium [Recovered/Resolved]
  - Hypertonic bladder [Not Recovered/Not Resolved]
  - COVID-19 [Recovered/Resolved]

NARRATIVE: CASE EVENT DATE: 20230807
